FAERS Safety Report 18334811 (Version 1)
Quarter: 2020Q4

REPORT INFORMATION
  Report Type: Spontaneous
  Country: FR (occurrence: FR)
  Receive Date: 20201001
  Receipt Date: 20201001
  Transmission Date: 20210113
  Serious: Yes (Other)
  Sender: FDA-Public Use
  Company Number: FR-SCIEGEN-2020SCILIT00311

PATIENT

DRUGS (4)
  1. GABAPENTIN TABLETS [Suspect]
     Active Substance: GABAPENTIN
     Indication: NEUROPATHY PERIPHERAL
     Dosage: 1100 MG PER DAY
     Route: 065
  2. VENLAFAXINE [Concomitant]
     Active Substance: VENLAFAXINE HYDROCHLORIDE
     Dosage: UNKNOWN
     Route: 065
  3. KETAMINE [Concomitant]
     Active Substance: KETAMINE
     Dosage: UNKNOWN
     Route: 065
  4. KETAMINE [Concomitant]
     Active Substance: KETAMINE
     Dosage: UNKNOWN
     Route: 065

REACTIONS (11)
  - Systemic inflammatory response syndrome [Recovered/Resolved]
  - Gingival bleeding [Recovered/Resolved]
  - Platelet disorder [Recovered/Resolved]
  - Mucocutaneous haemorrhage [Recovered/Resolved]
  - Microcytic anaemia [Unknown]
  - Menorrhagia [Recovered/Resolved]
  - Rectal haemorrhage [Recovered/Resolved]
  - Bleeding time prolonged [Recovered/Resolved]
  - Contusion [Recovered/Resolved]
  - Metrorrhagia [Recovered/Resolved]
  - Iron deficiency [Unknown]
